FAERS Safety Report 6810695-0 (Version None)
Quarter: 2010Q2

REPORT INFORMATION
  Report Type: 
  Country: None (occurrence: None)
  Receive Date: 20100630
  Receipt Date: 20070521
  Transmission Date: 20101027
  Serious: No
  Sender: FDA-Public Use
  Company Number: US-PFIZER INC-2007041332

PATIENT
  Sex: Female
  Weight: 54.43 kg

DRUGS (4)
  1. NICOTROL [Suspect]
     Indication: SMOKING CESSATION THERAPY
     Route: 055
     Dates: start: 20070519
  2. DIOVAN [Concomitant]
     Indication: HYPERTENSION
  3. EVISTA [Concomitant]
     Indication: OSTEOPOROSIS
  4. ACTONEL [Concomitant]
     Indication: OSTEOPOROSIS

REACTIONS (5)
  - ABDOMINAL DISCOMFORT [None]
  - HEADACHE [None]
  - INSOMNIA [None]
  - RHINORRHOEA [None]
  - SINUS HEADACHE [None]
